FAERS Safety Report 19506256 (Version 2)
Quarter: 2021Q3

REPORT INFORMATION
  Report Type: Report from Study
  Country: FR (occurrence: FR)
  Receive Date: 20210708
  Receipt Date: 20210723
  Transmission Date: 20211014
  Serious: Yes (Hospitalization)
  Sender: FDA-Public Use
  Company Number: NVSC2021FR151977

PATIENT
  Age: 61 Year
  Sex: Female
  Weight: 46.8 kg

DRUGS (10)
  1. TACROLIMUS. [Suspect]
     Active Substance: TACROLIMUS
     Indication: CHRONIC SPONTANEOUS URTICARIA
     Dosage: 1.5 MG, QD
     Route: 048
     Dates: start: 20210506
  2. OXAZEPAM. [Concomitant]
     Active Substance: OXAZEPAM
     Indication: INSOMNIA
     Dosage: 10 MG, QD
     Route: 048
     Dates: start: 20210524
  3. VALGANCICLOVIR. [Concomitant]
     Active Substance: VALGANCICLOVIR
     Indication: ANTIVIRAL PROPHYLAXIS
     Dosage: 900 MG, QD
     Route: 048
     Dates: start: 20210509
  4. PREDNISONE. [Concomitant]
     Active Substance: PREDNISONE
     Indication: PRODUCT USED FOR UNKNOWN INDICATION
     Dosage: 10 MG, QD
     Route: 048
     Dates: start: 20210505
  5. ISCALIMAB [Suspect]
     Active Substance: ISCALIMAB
     Indication: CHRONIC SPONTANEOUS URTICARIA
     Dosage: 600 MG, QD
     Route: 058
     Dates: start: 20210514
  6. FOLIC ACID. [Concomitant]
     Active Substance: FOLIC ACID
     Indication: ANAEMIA
     Dosage: 15 MG, QD
     Route: 048
     Dates: start: 20210509
  7. KARDEGIC [Concomitant]
     Active Substance: ASPIRIN DL-LYSINE
     Indication: THROMBOSIS PROPHYLAXIS
     Dosage: 75 MG, QD
     Route: 048
     Dates: start: 20210523
  8. ATARAX [Concomitant]
     Active Substance: HYDROXYZINE HYDROCHLORIDE
     Indication: INSOMNIA
     Dosage: 25 MG, QD
     Route: 048
     Dates: start: 20210513, end: 20210709
  9. MYCOPHENOLATE MOFETIL. [Suspect]
     Active Substance: MYCOPHENOLATE MOFETIL
     Indication: CHRONIC SPONTANEOUS URTICARIA
     Dosage: 2000 MG, QD
     Route: 048
     Dates: start: 20210505
  10. LANSOPRAZOLE. [Concomitant]
     Active Substance: LANSOPRAZOLE
     Indication: PROPHYLAXIS
     Dosage: 30 MG, QD
     Route: 048
     Dates: start: 20210509

REACTIONS (3)
  - Hepatic artery thrombosis [Not Recovered/Not Resolved]
  - Ischaemic cholecystitis [Not Recovered/Not Resolved]
  - Pyrexia [Recovered/Resolved]

NARRATIVE: CASE EVENT DATE: 20210701
